FAERS Safety Report 5718544-9 (Version None)
Quarter: 2008Q2

REPORT INFORMATION
  Report Type: 
  Country: None (occurrence: None)
  Receive Date: 20080425
  Receipt Date: 20080415
  Transmission Date: 20081010
  Serious: Yes (Life-Threatening, Hospitalization, Disabling, Other)
  Sender: FDA-Public Use
  Company Number: AU-PFIZER INC-2008016371

PATIENT
  Sex: Female

DRUGS (4)
  1. CHAMPIX [Suspect]
     Indication: SMOKING CESSATION THERAPY
     Route: 048
     Dates: start: 20080127, end: 20080101
  2. EFFEXOR [Interacting]
     Indication: DEPRESSION
  3. EFFEXOR XR [Concomitant]
     Route: 048
  4. XANAX [Concomitant]
     Route: 048

REACTIONS (3)
  - DEPRESSION [None]
  - DRUG INTERACTION [None]
  - SUICIDE ATTEMPT [None]
